FAERS Safety Report 20093926 (Version 1)
Quarter: 2021Q4

REPORT INFORMATION
  Report Type: Report from Study
  Country: AU (occurrence: None)
  Receive Date: 20211121
  Receipt Date: 20211121
  Transmission Date: 20220304
  Serious: Yes (Other)
  Sender: FDA-Public Use
  Company Number: 2021A811844

PATIENT
  Age: 63 Year
  Sex: Male

DRUGS (3)
  1. BYETTA [Suspect]
     Active Substance: EXENATIDE
     Indication: Diabetes mellitus
     Route: 065
     Dates: start: 20140201
  2. INSULIN ASPART [Suspect]
     Active Substance: INSULIN ASPART
     Indication: Diabetes mellitus
     Dosage: START DOSE: 8 UNITS; CURRENT DOSE: 8 UNITS
     Route: 065
  3. RYZODEG 70/30 [Suspect]
     Active Substance: INSULIN ASPART\INSULIN DEGLUDEC
     Indication: Diabetes mellitus
     Dosage: START DOSE: 50 UNITS, CURRENT DOSE: 140 UNITS
     Route: 065

REACTIONS (5)
  - Chronic kidney disease [Unknown]
  - Dyslipidaemia [Unknown]
  - Hypertension [Unknown]
  - Body mass index increased [Unknown]
  - Microalbuminuria [Unknown]
